FAERS Safety Report 6241967-9 (Version None)
Quarter: 2009Q2

REPORT INFORMATION
  Report Type: 
  Country: None (occurrence: None)
  Receive Date: 20090623
  Receipt Date: 20090619
  Transmission Date: 20091009
  Serious: Yes (Other)
  Sender: FDA-Public Use
  Company Number: US-AMGEN-US349727

PATIENT
  Sex: Female
  Weight: 116 kg

DRUGS (13)
  1. NPLATE [Suspect]
     Indication: IDIOPATHIC THROMBOCYTOPENIC PURPURA
     Route: 058
     Dates: start: 20090417, end: 20090521
  2. DEXAMETHASONE [Suspect]
     Dates: start: 20090413, end: 20090527
  3. CORTICOSTEROIDS [Concomitant]
     Dates: start: 20090101
  4. IMMUNOGLOBULINS [Concomitant]
     Dates: start: 20090101
  5. RITUXAN [Concomitant]
  6. AMICAR [Concomitant]
     Dates: start: 20090416, end: 20090527
  7. IMURAN [Concomitant]
     Dates: start: 20090420, end: 20090527
  8. TRAMADOL HCL [Concomitant]
     Route: 048
  9. VICODIN [Concomitant]
     Route: 048
  10. SYNTHROID [Concomitant]
     Route: 048
  11. CELLCEPT [Concomitant]
  12. SOLU-MEDROL [Concomitant]
  13. OXYCODONE HCL [Concomitant]

REACTIONS (7)
  - BLAST CELLS PRESENT [None]
  - BONE MARROW DISORDER [None]
  - CONTUSION [None]
  - DRUG INEFFECTIVE [None]
  - INSOMNIA [None]
  - SINUS CONGESTION [None]
  - TREMOR [None]
